FAERS Safety Report 6128822-X (Version None)
Quarter: 2009Q1

REPORT INFORMATION
  Report Type: 
  Country: None (occurrence: None)
  Receive Date: 20090323
  Receipt Date: 20090313
  Transmission Date: 20090719
  Serious: Yes (Hospitalization, Other)
  Sender: FDA-Public Use
  Company Number: US-BAXTER-2009BH004052

PATIENT
  Age: 68 Year
  Sex: Female

DRUGS (27)
  1. DIANEAL [Suspect]
     Indication: PERITONEAL DIALYSIS
     Route: 033
     Dates: end: 20090216
  2. DIANEAL [Suspect]
     Indication: PERITONEAL DIALYSIS
     Route: 033
     Dates: end: 20090216
  3. NEXIUM                                  /UNK/ [Concomitant]
     Indication: DRUG USE FOR UNKNOWN INDICATION
     Route: 065
  4. HECTOROL [Concomitant]
     Indication: DRUG USE FOR UNKNOWN INDICATION
     Route: 065
  5. SENSIPAR [Concomitant]
     Indication: DRUG USE FOR UNKNOWN INDICATION
     Route: 065
  6. COLACE [Concomitant]
     Indication: DRUG USE FOR UNKNOWN INDICATION
     Route: 065
  7. POTASSIUM CHLORIDE [Concomitant]
     Indication: DRUG USE FOR UNKNOWN INDICATION
     Route: 065
  8. FISH OIL [Concomitant]
     Indication: DRUG USE FOR UNKNOWN INDICATION
     Route: 065
  9. ASPIRIN [Concomitant]
     Indication: DRUG USE FOR UNKNOWN INDICATION
     Route: 065
  10. BUMEX [Concomitant]
     Indication: FLUID RETENTION
     Route: 065
  11. METOLAZONE [Concomitant]
     Indication: FLUID RETENTION
     Route: 065
  12. APRESOLINE [Concomitant]
     Indication: BLOOD PRESSURE
     Route: 065
  13. CORGARD [Concomitant]
     Indication: BLOOD PRESSURE
     Route: 065
  14. LISINOPRIL [Concomitant]
     Indication: BLOOD PRESSURE
     Route: 065
  15. ZOCOR [Concomitant]
     Indication: BLOOD CHOLESTEROL
     Route: 065
  16. SANDIMMUNE [Concomitant]
     Indication: PROPHYLAXIS AGAINST TRANSPLANT REJECTION
     Route: 065
  17. RENALTABS [Concomitant]
     Indication: VITAMIN SUPPLEMENTATION
     Route: 065
  18. NORVASC [Concomitant]
     Indication: BLOOD PRESSURE
     Route: 065
  19. FOLIC ACID [Concomitant]
     Indication: DRUG USE FOR UNKNOWN INDICATION
     Route: 065
  20. MELATONIN [Concomitant]
     Indication: INSOMNIA
     Route: 065
  21. INSULIN [Concomitant]
     Indication: DIABETES MELLITUS
     Route: 065
  22. FLOMAG [Concomitant]
     Indication: BLOOD MAGNESIUM DECREASED
     Route: 065
  23. PROSTAT [Concomitant]
     Indication: SUPPLEMENTATION THERAPY
     Route: 065
  24. CHROMAGEN FORTE [Concomitant]
     Indication: VITAMIN SUPPLEMENTATION
     Route: 065
  25. GLUCOSAMINE W/CHONDROITIN [Concomitant]
     Indication: ARTHRALGIA
     Route: 065
  26. RENAGEL [Concomitant]
     Indication: BLOOD PHOSPHORUS
     Route: 065
  27. FLAGYL [Concomitant]
     Indication: DRUG USE FOR UNKNOWN INDICATION
     Route: 065

REACTIONS (2)
  - ANGINA UNSTABLE [None]
  - CORONARY ARTERY OCCLUSION [None]
